FAERS Safety Report 8798896 (Version 1)
Quarter: 2012Q4

REPORT INFORMATION
  Report Type: Spontaneous
  Country: US (occurrence: None)
  Receive Date: 20120918
  Receipt Date: 20120918
  Transmission Date: 20130627
  Serious: Yes (Other)
  Sender: FDA-Public Use
  Company Number: None

PATIENT
  Age: 89 Year
  Sex: Female
  Weight: 60 kg

DRUGS (1)
  1. ALTEPLASE [Suspect]
     Indication: ACUTE ISCHEMIC STROKE
     Dosage: Alteplase 54mg once IV
     Route: 042
     Dates: start: 20120913, end: 20120913

REACTIONS (1)
  - Angioedema [None]
